FAERS Safety Report 5085840-0 (Version None)
Quarter: 2006Q4

REPORT INFORMATION
  Report Type: 
  Country: None (occurrence: None)
  Receive Date: 20060817
  Receipt Date: 20060809
  Transmission Date: 20070319
  Serious: Yes (Death, Hospitalization)
  Sender: FDA-Public Use
  Company Number: 2006-04428

PATIENT
  Sex: Female

DRUGS (13)
  1. DIAZEPAM [Suspect]
     Indication: BACK PAIN
     Dates: start: 19700101
  2. DIAZEPAM [Suspect]
     Indication: HEADACHE
     Dates: start: 19700101
  3. CARISOPRODOL [Suspect]
     Indication: PAIN
  4. CLONIDINE [Concomitant]
  5. LORAZEPAM [Suspect]
     Indication: PAIN
     Dosage: 6 MG, DAILY
  6. MEPERIDINE HYDROCHLORIDE [Suspect]
     Indication: PAIN
     Dosage: UNK DOSAGE/SCHEDUE INJECTION
  7. MORPHINE SULFATE [Suspect]
     Indication: PAIN
     Dosage: UNK DOSAGE/SCHEDULE INJECTION
  8. OXYCODONE HCL [Suspect]
     Indication: PAIN
     Dates: start: 19700101
  9. OXYCODONE HCL AND ACETAMINOPHEN [Suspect]
     Indication: PAIN
     Dosage: 1 DOSE Q2-4H, PRN
  10. OXYCODONE AND ASPIRIN [Suspect]
     Indication: TOOTHACHE
  11. ACETAMINOPHEN WITH PROPOXYPHENE HCL TAB [Suspect]
     Indication: PAIN
  12. METHADONE HCL [Suspect]
     Indication: PAIN
  13. ETHCHLORVYNOL [Suspect]
     Indication: PAIN

REACTIONS (6)
  - DRUG ABUSER [None]
  - DRUG DEPENDENCE [None]
  - DRUG TOXICITY [None]
  - EMOTIONAL DISORDER [None]
  - GENERAL PHYSICAL HEALTH DETERIORATION [None]
  - OVERDOSE [None]
